FAERS Safety Report 20843436 (Version 1)
Quarter: 2022Q2

REPORT INFORMATION
  Report Type: Spontaneous
  Country: GB (occurrence: GB)
  Receive Date: 20220518
  Receipt Date: 20220518
  Transmission Date: 20220721
  Serious: Yes (Hospitalization)
  Sender: FDA-Public Use
  Company Number: GB-MYLANLABS-2022M1033388

PATIENT
  Sex: Female

DRUGS (1)
  1. CLOZARIL [Suspect]
     Active Substance: CLOZAPINE
     Indication: Schizophrenia
     Dosage: UNK
     Route: 048
     Dates: start: 20121207, end: 20220501

REACTIONS (5)
  - Schizophrenia [Unknown]
  - Blood potassium increased [Recovered/Resolved]
  - Fall [Unknown]
  - Lower limb fracture [Unknown]
  - Lower respiratory tract infection [Unknown]
